FAERS Safety Report 5805672-2 (Version None)
Quarter: 2008Q3

REPORT INFORMATION
  Report Type: 
  Country: None (occurrence: None)
  Receive Date: 20080710
  Receipt Date: 20080516
  Transmission Date: 20090109
  Serious: No
  Sender: FDA-Public Use
  Company Number: A0728340A

PATIENT
  Age: 38 Year
  Sex: Female

DRUGS (8)
  1. TYKERB [Suspect]
     Indication: BREAST CANCER
     Dosage: 5TAB PER DAY
     Route: 048
     Dates: start: 20080509
  2. NAVELBINE [Suspect]
     Route: 065
     Dates: start: 20080502
  3. MULTIVITAMIN WITH IRON [Concomitant]
  4. PREVACID [Concomitant]
  5. LEXAPRO [Concomitant]
  6. ATIVAN [Concomitant]
  7. ZYRTEC [Concomitant]
  8. NASACORT AQ [Concomitant]

REACTIONS (4)
  - GLOSSODYNIA [None]
  - MOUTH ULCERATION [None]
  - MUCOUS MEMBRANE DISORDER [None]
  - ORAL PAIN [None]
